FAERS Safety Report 8329018-3 (Version None)
Quarter: 2012Q2

REPORT INFORMATION
  Report Type: 
  Country: None (occurrence: None)
  Receive Date: 20120502
  Receipt Date: 20120424
  Transmission Date: 20120825
  Serious: Yes (Other)
  Sender: FDA-Public Use
  Company Number: PHHY2012BR036024

PATIENT
  Age: 8 Year
  Sex: Female

DRUGS (2)
  1. RITALIN [Suspect]
     Dosage: 1 DF, DAILY
     Dates: start: 20120301
  2. RITALIN [Suspect]
     Indication: ATTENTION DEFICIT/HYPERACTIVITY DISORDER
     Dosage: 1 DF, DAILY
     Dates: end: 20111101

REACTIONS (1)
  - NEPHROLITHIASIS [None]
